FAERS Safety Report 7061929-1 (Version None)
Quarter: 2010Q4

REPORT INFORMATION
  Report Type: 
  Country: None (occurrence: None)
  Receive Date: 20101026
  Receipt Date: 20101021
  Transmission Date: 20110411
  Serious: Yes (Death, Hospitalization)
  Sender: FDA-Public Use
  Company Number: BE-MERCK-0912BEL00013

PATIENT
  Age: 47 Year
  Sex: Male
  Weight: 61 kg

DRUGS (8)
  1. RALTEGRAVIR POTASSIUM [Suspect]
     Indication: HIV INFECTION
     Route: 048
     Dates: start: 20081216
  2. METHYLPREDNISOLONE [Concomitant]
     Route: 048
  3. EMTRICITABINE [Concomitant]
     Indication: HIV INFECTION
     Route: 048
  4. MARAVIROC [Concomitant]
     Indication: HIV INFECTION
     Route: 048
  5. TRAMADOL HYDROCHLORIDE [Concomitant]
     Route: 048
  6. EFAVIRENZ [Concomitant]
     Indication: HIV INFECTION
     Route: 065
  7. LOPINAVIR [Concomitant]
     Indication: HIV INFECTION
     Route: 048
     Dates: end: 20081215
  8. RITONAVIR [Concomitant]
     Indication: HIV INFECTION
     Route: 048

REACTIONS (1)
  - CASTLEMAN'S DISEASE [None]
